FAERS Safety Report 7033029-8 (Version None)
Quarter: 2010Q4

REPORT INFORMATION
  Report Type: 
  Country: None (occurrence: None)
  Receive Date: 20101007
  Receipt Date: 20101004
  Transmission Date: 20110411
  Serious: Yes (Other)
  Sender: FDA-Public Use
  Company Number: JP-PFIZER INC-2010123794

PATIENT
  Age: 40 Year
  Sex: Male

DRUGS (1)
  1. NORVASC [Suspect]
     Dosage: 2.5 MG, 1X/DAY
     Route: 048
     Dates: start: 20030701, end: 20100901

REACTIONS (2)
  - MOUTH HAEMORRHAGE [None]
  - PERIODONTITIS [None]
